FAERS Safety Report 18263494 (Version 1)
Quarter: 2020Q3

REPORT INFORMATION
  Report Type: Spontaneous
  Country: CA (occurrence: CA)
  Receive Date: 20200914
  Receipt Date: 20200914
  Transmission Date: 20201103
  Serious: Yes (Life-Threatening, Hospitalization)
  Sender: FDA-Public Use
  Company Number: CA-PFIZER INC-2020351351

PATIENT
  Age: 67 Year
  Sex: Female
  Weight: 57 kg

DRUGS (5)
  1. LORBRENA [Suspect]
     Active Substance: LORLATINIB
     Indication: LUNG CANCER METASTATIC
     Dosage: 3 DF, 1X/DAY
     Route: 048
  2. FUROSEMIDE. [Concomitant]
     Active Substance: FUROSEMIDE
  3. SPIRONOLACTONE. [Concomitant]
     Active Substance: SPIRONOLACTONE
  4. XALKORI [Concomitant]
     Active Substance: CRIZOTINIB
  5. PANTOLOC [PANTOPRAZOLE] [Concomitant]
     Active Substance: PANTOPRAZOLE SODIUM

REACTIONS (10)
  - Bronchitis [Recovered/Resolved]
  - Language disorder [Recovered/Resolved]
  - Pulmonary embolism [Recovered/Resolved]
  - Hypertriglyceridaemia [Recovered/Resolved]
  - Low density lipoprotein increased [Recovered/Resolved]
  - High density lipoprotein increased [Recovered/Resolved]
  - Pneumonitis [Recovered/Resolved]
  - Mood altered [Recovered/Resolved]
  - Pleural effusion [Recovered/Resolved]
  - Blood cholesterol increased [Recovered/Resolved]
